FAERS Safety Report 5337588-2 (Version None)
Quarter: 2007Q2

REPORT INFORMATION
  Report Type: 
  Country: None (occurrence: None)
  Receive Date: 20070524
  Receipt Date: 20070514
  Transmission Date: 20071010
  Serious: Yes (Death)
  Sender: FDA-Public Use
  Company Number: 2007S1003266

PATIENT
  Age: 49 Year
  Sex: Male
  Weight: 101.1521 kg

DRUGS (4)
  1. FENTANYL TRANSDERMAL SYSTEM [Suspect]
     Dosage: 150 UG/HR; X1; TRANSDERMAL
     Route: 062
     Dates: end: 20070413
  2. TRAMADOL HCL [Concomitant]
  3. ALPRAZOLAM [Concomitant]
  4. VICODIN [Concomitant]

REACTIONS (9)
  - ARTERIOSCLEROSIS [None]
  - CHRONIC OBSTRUCTIVE PULMONARY DISEASE [None]
  - COMPLETED SUICIDE [None]
  - CORONARY ARTERY DISEASE [None]
  - DRUG TOXICITY [None]
  - HYPERTENSIVE CARDIOMYOPATHY [None]
  - MYOCARDIAL INFARCTION [None]
  - RENAL INFARCT [None]
  - VENTRICULAR HYPERTROPHY [None]
